FAERS Safety Report 7368553-1 (Version None)
Quarter: 2011Q1

REPORT INFORMATION
  Report Type: 
  Country: None (occurrence: None)
  Receive Date: 20110311
  Receipt Date: 20110307
  Transmission Date: 20110831
  Serious: Yes (Hospitalization)
  Sender: FDA-Public Use
  Company Number: 2010SP032494

PATIENT
  Age: 19 Year
  Sex: Male

DRUGS (7)
  1. TEMODAL [Suspect]
     Indication: NEOPLASM
     Dosage: 260 MG; QD; PO
     Route: 048
     Dates: start: 20100517, end: 20100521
  2. TOPOTECAN [Suspect]
     Indication: NEOPLASM
     Dosage: 1.312 MG; QD; IV
     Route: 042
     Dates: start: 20100517, end: 20100521
  3. IFOSFAMIDE [Concomitant]
  4. ADRIAMYCIN PFS [Concomitant]
  5. VP-16 [Concomitant]
  6. CISPLATIN [Concomitant]
  7. THIOTEPA [Concomitant]

REACTIONS (1)
  - FEBRILE BONE MARROW APLASIA [None]
